FAERS Safety Report 9518624 (Version 1)
Quarter: 2013Q1

REPORT INFORMATION
  Report Type: Spontaneous
  Country: US (occurrence: None)
  Receive Date: 20130305
  Receipt Date: 20130305
  Transmission Date: 20140127
  Serious: Yes (Hospitalization)
  Sender: FDA-Public Use
  Company Number: 163-21880-12121253

PATIENT
  Age: 67 Year
  Sex: Male
  Weight: 68.04 kg

DRUGS (19)
  1. REVLIMID (LENALIDOMIDE) (CAPSULES) [Suspect]
     Indication: PLASMA CELL MYELOMA
     Dosage: 15 MG, 21 IN 21 D, PO
     Route: 048
     Dates: start: 20121002, end: 20121027
  2. ARANESP (DARBEPOETIN ALFA) [Concomitant]
  3. BENADRYL [Concomitant]
  4. CALCITRIOL [Concomitant]
  5. CLACE [Concomitant]
  6. COREG (CARVEDILOL) [Concomitant]
  7. DECADRON (DEXAMETHASONE) [Concomitant]
  8. HEPARIN [Concomitant]
  9. HUMALOG (INSULIN LISPRO) [Concomitant]
  10. LANTUS (INSULIN GLARGINE) [Concomitant]
  11. LISINOPRIL [Concomitant]
  12. MVI PEDIATRIC [Concomitant]
  13. NORVASC (AMLODIPINE BESILATE) [Concomitant]
  14. PRAVASTATIN [Concomitant]
  15. ROCEPHIN (CEFTRIAXONE SODIUM) [Concomitant]
  16. TUMS (CALCIUM CARBONATE) [Concomitant]
  17. VITAMIN B12 (CYANOCOBALAMIN) [Concomitant]
  18. VITAMIN D (ERGOCALCIFEROL) [Concomitant]
  19. ZOVIRAX [Concomitant]

REACTIONS (3)
  - Pleural effusion [None]
  - Lung infection [None]
  - Malaise [None]
